FAERS Safety Report 8518481 (Version 3)
Quarter: 2015Q1

REPORT INFORMATION
  Report Type: Spontaneous
  Country: US (occurrence: US)
  Receive Date: 20120417
  Receipt Date: 20150225
  Transmission Date: 20150721
  Serious: Yes (Other)
  Sender: FDA-Public Use
  Company Number: US-ASTRAZENECA-2011SE10984

PATIENT
  Age: 79 Year
  Sex: Female
  Weight: 59 kg

DRUGS (3)
  1. LOT OF MEDICATIONS FOR BLOOD PRESSURE [Concomitant]
  2. NEXIUM [Suspect]
     Active Substance: ESOMEPRAZOLE MAGNESIUM
     Indication: GASTROOESOPHAGEAL REFLUX DISEASE
     Route: 048
  3. LOT OF MEDICATIONS FOR HER HEART [Concomitant]

REACTIONS (7)
  - Cough [Unknown]
  - Cardiac disorder [Unknown]
  - Dyspepsia [Unknown]
  - Arterial disorder [Unknown]
  - Viral infection [Unknown]
  - Hypertension [Unknown]
  - Drug dose omission [Not Recovered/Not Resolved]

NARRATIVE: CASE EVENT DATE: 2014
